FAERS Safety Report 5431566-0 (Version None)
Quarter: 2007Q3

REPORT INFORMATION
  Report Type: 
  Country: None (occurrence: None)
  Receive Date: 20070830
  Receipt Date: 20070828
  Transmission Date: 20080115
  Serious: Yes (Hospitalization)
  Sender: FDA-Public Use
  Company Number: AU-JNJFOC-20070805455

PATIENT
  Sex: Female

DRUGS (6)
  1. DAKTARIN [Suspect]
     Route: 048
  2. DAKTARIN [Suspect]
     Indication: ORAL CANDIDIASIS
     Route: 048
  3. WARFARIN SODIUM [Interacting]
     Indication: DRUG USE FOR UNKNOWN INDICATION
     Route: 065
  4. CARTIA XT [Concomitant]
     Route: 065
  5. BETALOC [Concomitant]
     Route: 065
  6. LIPEX [Concomitant]
     Route: 065

REACTIONS (3)
  - CONTUSION [None]
  - DRUG INTERACTION [None]
  - HAEMORRHAGE [None]
